FAERS Safety Report 14760367 (Version 7)
Quarter: 2021Q2

REPORT INFORMATION
  Report Type: Other
  Country: CA (occurrence: CA)
  Receive Date: 20180414
  Receipt Date: 20210525
  Transmission Date: 20210716
  Serious: Yes (Other)
  Sender: FDA-Public Use
  Company Number: CA-ROCHE-2107548

PATIENT
  Age: 43 Year
  Sex: Male

DRUGS (13)
  1. REACTINE (CANADA) [Concomitant]
     Active Substance: CETIRIZINE HYDROCHLORIDE
     Indication: PRODUCT USED FOR UNKNOWN INDICATION
     Route: 048
  2. XOLAIR [Suspect]
     Active Substance: OMALIZUMAB
     Route: 058
     Dates: start: 20210416
  3. MIRTAZAPINE. [Concomitant]
     Active Substance: MIRTAZAPINE
     Indication: PRODUCT USED FOR UNKNOWN INDICATION
     Route: 048
     Dates: start: 2014
  4. SYMBICORT [Concomitant]
     Active Substance: BUDESONIDE\FORMOTEROL FUMARATE DIHYDRATE
     Indication: PRODUCT USED FOR UNKNOWN INDICATION
     Route: 055
  5. XOLAIR [Suspect]
     Active Substance: OMALIZUMAB
     Route: 058
     Dates: start: 20180125
  6. CITALOPRAM [Concomitant]
     Active Substance: CITALOPRAM HYDROBROMIDE
     Indication: PRODUCT USED FOR UNKNOWN INDICATION
     Route: 048
     Dates: start: 2014
  7. XOLAIR [Suspect]
     Active Substance: OMALIZUMAB
     Route: 058
     Dates: start: 20190628
  8. XOLAIR [Suspect]
     Active Substance: OMALIZUMAB
     Route: 058
  9. VENTOLIN [Concomitant]
     Active Substance: ALBUTEROL SULFATE
     Indication: PRODUCT USED FOR UNKNOWN INDICATION
     Route: 055
  10. XOLAIR [Suspect]
     Active Substance: OMALIZUMAB
     Indication: CHRONIC SPONTANEOUS URTICARIA
     Route: 058
     Dates: start: 20171130
  11. XOLAIR [Suspect]
     Active Substance: OMALIZUMAB
     Route: 058
     Dates: start: 20180824
  12. XOLAIR [Suspect]
     Active Substance: OMALIZUMAB
     Route: 058
     Dates: start: 20190531
  13. CLONAZEPAM. [Concomitant]
     Active Substance: CLONAZEPAM
     Indication: PRODUCT USED FOR UNKNOWN INDICATION
     Dosage: 1 DF, BID
     Dates: start: 2014

REACTIONS (12)
  - Swelling face [Unknown]
  - Alopecia [Unknown]
  - Cough [Not Recovered/Not Resolved]
  - Urticaria [Not Recovered/Not Resolved]
  - Nasopharyngitis [Not Recovered/Not Resolved]
  - Oropharyngeal pain [Not Recovered/Not Resolved]
  - Off label use [Unknown]
  - Dyspnoea [Unknown]
  - Chillblains [Unknown]
  - Retinal detachment [Unknown]
  - Eye discharge [Unknown]
  - Pain in extremity [Unknown]

NARRATIVE: CASE EVENT DATE: 20190625
